FAERS Safety Report 15392373 (Version 1)
Quarter: 2018Q4

REPORT INFORMATION
  Report Type: Spontaneous
  Country: ZA (occurrence: ZA)
  Receive Date: 20180917
  Receipt Date: 20180917
  Transmission Date: 20190204
  Serious: Yes (Hospitalization, Other)
  Sender: FDA-Public Use
  Company Number: ZA-PFIZER INC-2018357171

PATIENT
  Age: 77 Year
  Sex: Female

DRUGS (5)
  1. AMLOC [AMLODIPINE MALEATE] [Suspect]
     Active Substance: AMLODIPINE MALEATE
     Dosage: 5 MG, UNK
  2. ASPAVOR [Suspect]
     Active Substance: ATORVASTATIN
     Dosage: 40 MG, 1X/DAY
     Dates: end: 20180907
  3. ECOTRIN [Suspect]
     Active Substance: ASPIRIN
     Dosage: 81 MG, UNK
  4. PREXUM [Suspect]
     Active Substance: PERINDOPRIL ERBUMINE
     Dosage: 10 MG, UNK
  5. ASPAVOR [Suspect]
     Active Substance: ATORVASTATIN
     Dosage: UNK

REACTIONS (1)
  - Coronary artery occlusion [Unknown]
